FAERS Safety Report 5312150-6 (Version None)
Quarter: 2007Q2

REPORT INFORMATION
  Report Type: 
  Country: None (occurrence: None)
  Receive Date: 20070430
  Receipt Date: 20061006
  Transmission Date: 20071010
  Serious: No
  Sender: FDA-Public Use
  Company Number: 2006UW16760

PATIENT
  Age: 73 Year
  Sex: Female
  Weight: 82.6 kg

DRUGS (6)
  1. NEXIUM [Suspect]
     Indication: GASTROOESOPHAGEAL REFLUX DISEASE
     Route: 048
  2. ASPIRIN [Concomitant]
  3. MULTI-VITAMIN [Concomitant]
  4. ARICEPT [Concomitant]
  5. MAXZIDE [Concomitant]
  6. FIBERCON [Concomitant]

REACTIONS (13)
  - ABDOMINAL PAIN UPPER [None]
  - FATIGUE [None]
  - GINGIVAL DISORDER [None]
  - HAEMATOCHEZIA [None]
  - HEADACHE [None]
  - HYPERSENSITIVITY [None]
  - HYPOAESTHESIA [None]
  - INFLUENZA [None]
  - PAIN IN EXTREMITY [None]
  - PARAESTHESIA ORAL [None]
  - RASH [None]
  - SPEECH DISORDER [None]
  - STOMATITIS [None]
